FAERS Safety Report 10057421 (Version 1)
Quarter: 2014Q2

REPORT INFORMATION
  Report Type: Spontaneous
  Country: IT (occurrence: IT)
  Receive Date: 20140403
  Receipt Date: 20140403
  Transmission Date: 20141212
  Serious: Yes (Other)
  Sender: FDA-Public Use
  Company Number: IT-TEVA-473180ISR

PATIENT
  Age: 52 Year
  Sex: Male
  Weight: 94 kg

DRUGS (4)
  1. RIBAVIRINA [Suspect]
     Indication: CHRONIC HEPATITIS C
     Dosage: 1200 MILLIGRAM DAILY;
     Dates: start: 20130327, end: 20130524
  2. VICTRELIS [Suspect]
     Indication: CHRONIC HEPATITIS C
     Dosage: 2400 MILLIGRAM DAILY;
     Dates: start: 20130508, end: 20130524
  3. PEGASYS [Suspect]
     Indication: CHRONIC HEPATITIS C
     Dosage: 180 MICROGRAM DAILY;
     Dates: start: 20130327, end: 20130524
  4. EPREX 4000 U [Concomitant]
     Dosage: 8000 IU (INTERNATIONAL UNIT) DAILY;
     Dates: start: 20130508, end: 20130524

REACTIONS (1)
  - VIIth nerve paralysis [Recovering/Resolving]
